FAERS Safety Report 21084119 (Version 1)
Quarter: 2022Q3

REPORT INFORMATION
  Report Type: Spontaneous
  Country: GB (occurrence: GB)
  Receive Date: 20220714
  Receipt Date: 20220714
  Transmission Date: 20221027
  Serious: No
  Sender: FDA-Public Use
  Company Number: GB-GW PHARMA-202203GBGW01311

PATIENT

DRUGS (1)
  1. CANNABIDIOL [Suspect]
     Active Substance: CANNABIDIOL
     Indication: Product used for unknown indication
     Dosage: UNK
     Route: 048
     Dates: start: 2019

REACTIONS (8)
  - Dehydration [Unknown]
  - Dyspnoea [Unknown]
  - Loss of personal independence in daily activities [Unknown]
  - Quality of life decreased [Unknown]
  - Feeding disorder [Unknown]
  - Anticonvulsant drug level increased [Unknown]
  - Seizure [Unknown]
  - Sedation [Unknown]

NARRATIVE: CASE EVENT DATE: 20190101
